FAERS Safety Report 12435391 (Version 1)
Quarter: 2016Q2

REPORT INFORMATION
  Report Type: Spontaneous
  Country: US (occurrence: US)
  Receive Date: 20160603
  Receipt Date: 20160603
  Transmission Date: 20160815
  Serious: No
  Sender: FDA-Public Use
  Company Number: US-ROCHE-1675915

PATIENT
  Sex: Female

DRUGS (2)
  1. XELODA [Suspect]
     Active Substance: CAPECITABINE
     Dosage: 3 BID
     Route: 048
     Dates: start: 20151130
  2. XELODA [Suspect]
     Active Substance: CAPECITABINE
     Indication: PRODUCT USED FOR UNKNOWN INDICATION
     Dosage: 3 BID
     Route: 048
     Dates: start: 20151111

REACTIONS (3)
  - Sinusitis [Unknown]
  - Abdominal pain [Unknown]
  - Muscle spasms [Unknown]
